FAERS Safety Report 25913518 (Version 1)
Quarter: 2025Q4

REPORT INFORMATION
  Report Type: Spontaneous
  Country: EU (occurrence: EU)
  Receive Date: 20251013
  Receipt Date: 20251013
  Transmission Date: 20260117
  Serious: Yes (Life-Threatening, Hospitalization, Other)
  Sender: MYLAN
  Company Number: EU-ORESUND-25OPAJY1078P

PATIENT
  Age: 36 Year
  Sex: Female

DRUGS (24)
  1. METHOTREXATE [Suspect]
     Active Substance: METHOTREXATE
     Indication: Polychondritis
     Dosage: UNK
  2. METHOTREXATE [Suspect]
     Active Substance: METHOTREXATE
     Dosage: UNK
     Route: 065
  3. METHOTREXATE [Suspect]
     Active Substance: METHOTREXATE
     Dosage: UNK
     Route: 065
  4. METHOTREXATE [Suspect]
     Active Substance: METHOTREXATE
     Dosage: UNK
  5. CORTICOSTEROID NOS [Suspect]
     Active Substance: CORTICOSTEROID NOS
     Indication: Polychondritis
     Dosage: UNK
  6. CORTICOSTEROID NOS [Suspect]
     Active Substance: CORTICOSTEROID NOS
     Dosage: UNK
     Route: 065
  7. CORTICOSTEROID NOS [Suspect]
     Active Substance: CORTICOSTEROID NOS
     Dosage: UNK
     Route: 065
  8. CORTICOSTEROID NOS [Suspect]
     Active Substance: CORTICOSTEROID NOS
     Dosage: UNK
  9. MYCOPHENOLATE MOFETIL [Suspect]
     Active Substance: MYCOPHENOLATE MOFETIL
     Indication: Chondritis
     Dosage: 2 GRAM, QD (2G DAILY)
  10. MYCOPHENOLATE MOFETIL [Suspect]
     Active Substance: MYCOPHENOLATE MOFETIL
     Dosage: 2 GRAM, QD (2G DAILY)
     Route: 065
  11. MYCOPHENOLATE MOFETIL [Suspect]
     Active Substance: MYCOPHENOLATE MOFETIL
     Dosage: 2 GRAM, QD (2G DAILY)
     Route: 065
  12. MYCOPHENOLATE MOFETIL [Suspect]
     Active Substance: MYCOPHENOLATE MOFETIL
     Dosage: 2 GRAM, QD (2G DAILY)
  13. TOCILIZUMAB [Suspect]
     Active Substance: TOCILIZUMAB
     Indication: Polychondritis
     Dosage: 162 MILLIGRAM, QW (162 MG WEEKLY)
  14. TOCILIZUMAB [Suspect]
     Active Substance: TOCILIZUMAB
     Dosage: 162 MILLIGRAM, QW (162 MG WEEKLY)
     Route: 057
  15. TOCILIZUMAB [Suspect]
     Active Substance: TOCILIZUMAB
     Dosage: 162 MILLIGRAM, QW (162 MG WEEKLY)
     Route: 057
  16. TOCILIZUMAB [Suspect]
     Active Substance: TOCILIZUMAB
     Dosage: 162 MILLIGRAM, QW (162 MG WEEKLY)
  17. METHYLPREDNISOLONE [Concomitant]
     Active Substance: METHYLPREDNISOLONE
     Indication: Chondritis
     Dosage: 1 GRAM (3 IV PULSES OF 1G)
  18. METHYLPREDNISOLONE [Concomitant]
     Active Substance: METHYLPREDNISOLONE
     Dosage: 1 GRAM (3 IV PULSES OF 1G)
     Route: 042
  19. METHYLPREDNISOLONE [Concomitant]
     Active Substance: METHYLPREDNISOLONE
     Dosage: 1 GRAM (3 IV PULSES OF 1G)
     Route: 042
  20. METHYLPREDNISOLONE [Concomitant]
     Active Substance: METHYLPREDNISOLONE
     Dosage: 1 GRAM (3 IV PULSES OF 1G)
  21. CYCLOPHOSPHAMIDE [Concomitant]
     Active Substance: CYCLOPHOSPHAMIDE
     Indication: Chondritis
     Dosage: 1 GRAM (6 MONTHLY IV PULSES OF 1G)
  22. CYCLOPHOSPHAMIDE [Concomitant]
     Active Substance: CYCLOPHOSPHAMIDE
     Dosage: 1 GRAM (6 MONTHLY IV PULSES OF 1G)
     Route: 042
  23. CYCLOPHOSPHAMIDE [Concomitant]
     Active Substance: CYCLOPHOSPHAMIDE
     Dosage: 1 GRAM (6 MONTHLY IV PULSES OF 1G)
     Route: 042
  24. CYCLOPHOSPHAMIDE [Concomitant]
     Active Substance: CYCLOPHOSPHAMIDE
     Dosage: 1 GRAM (6 MONTHLY IV PULSES OF 1G)

REACTIONS (21)
  - Chondritis [Recovered/Resolved]
  - Stridor [Unknown]
  - Uveitis [Recovered/Resolved]
  - Palmoplantar pustulosis [Unknown]
  - Respiratory tract oedema [Unknown]
  - Tracheal disorder [Unknown]
  - Obstructive airways disorder [Unknown]
  - Dyspnoea [Unknown]
  - Ocular hyperaemia [Recovered/Resolved]
  - Episcleritis [Recovered/Resolved]
  - Pain of skin [Unknown]
  - Dysphonia [Unknown]
  - Visual acuity reduced [Recovered/Resolved]
  - Skin lesion [Unknown]
  - Rash erythematous [Unknown]
  - Upper respiratory tract infection [Recovered/Resolved]
  - Rash pruritic [Unknown]
  - Eye pain [Recovered/Resolved]
  - Therapy cessation [Unknown]
  - Therapy change [Unknown]
  - Off label use [Unknown]
